FAERS Safety Report 8446382-5 (Version None)
Quarter: 2012Q2

REPORT INFORMATION
  Report Type: 
  Country: None (occurrence: None)
  Receive Date: 20120618
  Receipt Date: 20111123
  Transmission Date: 20120825
  Serious: No
  Sender: FDA-Public Use
  Company Number: US-TEVA-2011004160

PATIENT
  Sex: Male
  Weight: 122.58 kg

DRUGS (6)
  1. ACTIQ [Suspect]
     Indication: BREAKTHROUGH PAIN
     Route: 002
     Dates: start: 20110101, end: 20110801
  2. ACTIQ [Suspect]
     Indication: NEURALGIA
     Route: 002
     Dates: start: 20080101, end: 20110101
  3. MS CONTIN [Concomitant]
     Dosage: 90 MILLIGRAM;
     Route: 048
  4. ACTIQ [Suspect]
     Route: 002
     Dates: start: 20110701
  5. OXYCODONE HCL [Concomitant]
     Route: 048
  6. PHENERGAN [Concomitant]

REACTIONS (6)
  - ADMINISTRATION SITE REACTION [None]
  - WRONG TECHNIQUE IN DRUG USAGE PROCESS [None]
  - DRUG INEFFECTIVE FOR UNAPPROVED INDICATION [None]
  - VOMITING [None]
  - SOMNOLENCE [None]
  - STOMATITIS [None]
